FAERS Safety Report 10152365 (Version 1)
Quarter: 2014Q2

REPORT INFORMATION
  Report Type: Spontaneous
  Country: FR (occurrence: FR)
  Receive Date: 20140505
  Receipt Date: 20140505
  Transmission Date: 20141212
  Serious: Yes (Hospitalization)
  Sender: FDA-Public Use
  Company Number: FR-009507513-1404FRA014148

PATIENT
  Age: 48 Year
  Sex: Male
  Weight: 86 kg

DRUGS (4)
  1. AERIUS [Suspect]
     Indication: PRURITUS
     Dosage: 5 MG, QD
     Route: 048
     Dates: start: 20140319
  2. HUMIRA [Suspect]
     Indication: PSORIASIS
     Dosage: 40 MG, UNK
     Route: 058
     Dates: start: 20140312, end: 20140319
  3. ATARAX (HYDROXYZINE HYDROCHLORIDE) [Suspect]
     Indication: PRURITUS
     Dosage: 25 MG, QD
     Route: 048
     Dates: start: 20140319
  4. [COMPOSITION UNSPECIFIED] [Concomitant]

REACTIONS (1)
  - Dermatitis exfoliative [Recovered/Resolved]
